FAERS Safety Report 19025299 (Version 1)
Quarter: 2021Q1

REPORT INFORMATION
  Report Type: Spontaneous
  Country: US (occurrence: US)
  Receive Date: 20210318
  Receipt Date: 20210318
  Transmission Date: 20210420
  Serious: No
  Sender: FDA-Public Use
  Company Number: US-GLAXOSMITHKLINE-USCH2021AMR012344

PATIENT
  Sex: Female

DRUGS (1)
  1. ROBITUSSIN (CHLORPHEN MAL+IBUPROFEN+PSEUDOEPHED HCL) [Suspect]
     Active Substance: CHLORPHENIRAMINE MALEATE\IBUPROFEN\PSEUDOEPHEDRINE HYDROCHLORIDE
     Indication: PNEUMONIA
     Dosage: UNK

REACTIONS (2)
  - Urticaria [Unknown]
  - Off label use [Unknown]
